FAERS Safety Report 11695709 (Version 1)
Quarter: 2015Q4

REPORT INFORMATION
  Report Type: Spontaneous
  Country: US (occurrence: None)
  Receive Date: 20151103
  Receipt Date: 20151103
  Transmission Date: 20160304
  Serious: Yes (Hospitalization)
  Sender: FDA-Public Use
  Company Number: None

PATIENT
  Age: 63 Year
  Sex: Male
  Weight: 85.5 kg

DRUGS (2)
  1. THORAZINE [Suspect]
     Active Substance: CHLORPROMAZINE
     Indication: POST-TRAUMATIC STRESS DISORDER
     Dosage: 300MG NIGHT ORAL
     Route: 048
  2. THORAZINE [Suspect]
     Active Substance: CHLORPROMAZINE
     Indication: SCHIZOAFFECTIVE DISORDER
     Dosage: 100 MG MORNING ORAL
     Route: 048

REACTIONS (3)
  - Orthostatic hypotension [None]
  - Skin discolouration [None]
  - Hyponatraemia [None]

NARRATIVE: CASE EVENT DATE: 20150916
